FAERS Safety Report 12466618 (Version 1)
Quarter: 2016Q2

REPORT INFORMATION
  Report Type: Report from Study
  Country: US (occurrence: US)
  Receive Date: 20160615
  Receipt Date: 20160615
  Transmission Date: 20160815
  Serious: No
  Sender: FDA-Public Use
  Company Number: US-ALEXION-A201604278

PATIENT
  Sex: Female

DRUGS (1)
  1. STRENSIQ [Suspect]
     Active Substance: ASFOTASE ALFA
     Indication: PRODUCT USED FOR UNKNOWN INDICATION
     Dosage: UNK
     Route: 058

REACTIONS (7)
  - Injection site erythema [Unknown]
  - Injection site reaction [Unknown]
  - Hyperaesthesia [Unknown]
  - Sinus disorder [Unknown]
  - Dysgeusia [Unknown]
  - Pain [Unknown]
  - Oral hyperaesthesia [Unknown]
